FAERS Safety Report 21675753 (Version 1)
Quarter: 2022Q4

REPORT INFORMATION
  Report Type: Spontaneous
  Country: US (occurrence: US)
  Receive Date: 20221202
  Receipt Date: 20221202
  Transmission Date: 20230113
  Serious: No
  Sender: FDA-Public Use
  Company Number: US-MYLANLABS-2022M1095326

PATIENT
  Sex: Male

DRUGS (3)
  1. SEMGLEE (INSULIN GLARGINE-YFGN) [Suspect]
     Active Substance: INSULIN GLARGINE-YFGN
     Indication: Type 1 diabetes mellitus
     Dosage: 50 INTERNATIONAL UNIT, PM (50 UNITS ONCE)
     Route: 058
  2. SEMGLEE (INSULIN GLARGINE-YFGN) [Suspect]
     Active Substance: INSULIN GLARGINE-YFGN
     Dosage: 50 INTERNATIONAL UNIT, QD
     Route: 058
  3. HUMALOG [Concomitant]
     Active Substance: INSULIN LISPRO
     Dosage: UNK
     Route: 065

REACTIONS (4)
  - Device defective [Unknown]
  - Device leakage [Unknown]
  - Device breakage [Unknown]
  - Wrong technique in product usage process [Unknown]
